FAERS Safety Report 25074347 (Version 1)
Quarter: 2025Q1

REPORT INFORMATION
  Report Type: Spontaneous
  Country: US (occurrence: US)
  Receive Date: 20250313
  Receipt Date: 20250313
  Transmission Date: 20250409
  Serious: Yes (Hospitalization)
  Sender: PFIZER
  Company Number: US-PFIZER INC-202500053202

PATIENT
  Age: 62 Year
  Sex: Female
  Weight: 47.17 kg

DRUGS (12)
  1. OXBRYTA [Suspect]
     Active Substance: VOXELOTOR
     Indication: Sickle cell disease
     Dosage: 2 TABLETS A DAY. 1000 THE PATIENT THINKS
     Dates: start: 2022, end: 202410
  2. OXBRYTA [Suspect]
     Active Substance: VOXELOTOR
     Indication: Growth disorder
  3. FOLIC ACID [Concomitant]
     Active Substance: FOLIC ACID
     Indication: Sickle cell disease
     Dosage: 2 MILLIGRAMS, ONCE A DAY
  4. HYDREA [Concomitant]
     Active Substance: HYDROXYUREA
     Indication: Sickle cell anaemia
     Dosage: 1000 MILLIGRAMS, ONCE A DAY
  5. MORPHINE SULFATE [Concomitant]
     Active Substance: MORPHINE SULFATE
     Indication: Sickle cell anaemia
     Dosage: ER; 100 MILLIGRAM, TWICE A DAY
  6. OXYCODONE [Concomitant]
     Active Substance: OXYCODONE
     Indication: Sickle cell anaemia
     Dosage: 30 MILLIGRAM, THREE TIMES A DAY
  7. PLAQUENIL [Concomitant]
     Active Substance: HYDROXYCHLOROQUINE SULFATE
     Indication: Rheumatoid arthritis
     Dosage: 200 MILLIGRAM, ONCE A DAY
  8. CLARITIN [Concomitant]
     Active Substance: LORATADINE
     Indication: Idiopathic angioedema
     Dosage: AT NIGHT
  9. FLUCONAZOLE [Concomitant]
     Active Substance: FLUCONAZOLE
     Indication: Hypersensitivity
     Route: 045
  10. PREDNISONE [Concomitant]
     Active Substance: PREDNISONE
     Indication: Angioedema
  11. PREDNISONE [Concomitant]
     Active Substance: PREDNISONE
     Dosage: 40 MILLIGRAMS, TWICE A DAY
  12. LOPRESSOR [Concomitant]
     Active Substance: METOPROLOL TARTRATE
     Indication: Supraventricular tachycardia
     Dosage: 50 MILLIGRAMS TWICE A DAY

REACTIONS (1)
  - Feeling abnormal [Unknown]

NARRATIVE: CASE EVENT DATE: 20240101
